FAERS Safety Report 7931781-8 (Version None)
Quarter: 2011Q4

REPORT INFORMATION
  Report Type: 
  Country: None (occurrence: None)
  Receive Date: 20111121
  Receipt Date: 20111115
  Transmission Date: 20120403
  Serious: Yes (Life-Threatening, Other)
  Sender: FDA-Public Use
  Company Number: US-CELGENEUS-163-21880-11090105

PATIENT
  Sex: Female

DRUGS (6)
  1. DEXAMETHASONE [Concomitant]
     Dosage: 10 MILLIGRAM
     Route: 065
  2. LEVOXYL [Concomitant]
     Dosage: 112 MICROGRAM
     Route: 065
  3. SENIOR VITES [Concomitant]
     Route: 048
  4. REVLIMID [Suspect]
     Indication: MULTIPLE MYELOMA
     Dosage: 25 MILLIGRAM
     Route: 048
     Dates: start: 20110216
  5. SYNTHROID [Concomitant]
     Dosage: 100 MICROGRAM
     Route: 065
  6. ASPIRIN [Concomitant]
     Dosage: 325 MILLIGRAM
     Route: 065

REACTIONS (7)
  - PYREXIA [None]
  - STREPTOCOCCAL BACTERAEMIA [None]
  - PLATELET COUNT DECREASED [None]
  - NEUTROPENIA [None]
  - WHITE BLOOD CELL COUNT DECREASED [None]
  - MALAISE [None]
  - HAEMOGLOBIN DECREASED [None]
